FAERS Safety Report 4996601-2 (Version None)
Quarter: 2006Q2

REPORT INFORMATION
  Report Type: 
  Country: None (occurrence: None)
  Receive Date: 20060505
  Receipt Date: 20060425
  Transmission Date: 20061013
  Serious: Yes (Hospitalization)
  Sender: FDA-Public Use
  Company Number: 2005BI022534

PATIENT
  Age: 39 Year
  Sex: Male
  Weight: 72.1219 kg

DRUGS (2)
  1. AVONEX [Suspect]
     Indication: MULTIPLE SCLEROSIS
     Dosage: 30 UG; QW; IM
     Route: 030
     Dates: start: 20000101, end: 20020101
  2. AVONEX [Suspect]
     Indication: MULTIPLE SCLEROSIS
     Dosage: 30 UG; QW; IM
     Route: 030
     Dates: start: 20050601

REACTIONS (5)
  - ARTHRALGIA [None]
  - DEPRESSION [None]
  - HEADACHE [None]
  - HIP SURGERY [None]
  - OSTEONECROSIS [None]
